FAERS Safety Report 7811247-6 (Version None)
Quarter: 2011Q4

REPORT INFORMATION
  Report Type: 
  Country: None (occurrence: None)
  Receive Date: 20111013
  Receipt Date: 20111005
  Transmission Date: 20120403
  Serious: Yes (Life-Threatening, Other)
  Sender: FDA-Public Use
  Company Number: JP-PFIZER INC-2011236620

PATIENT
  Age: 70 Year
  Sex: Male

DRUGS (15)
  1. CYTARABINE [Concomitant]
     Indication: ACUTE MYELOID LEUKAEMIA
     Dosage: 10 MG/M2, 1 IN 12 HR
     Route: 058
  2. VANCOMYCIN HYDROCHLORIDE [Concomitant]
     Indication: FEBRILE NEUTROPENIA
     Dosage: UNK
  3. SUCRALFATE [Concomitant]
     Dosage: 900 MG, 3X/DAY
     Route: 048
  4. VORICONAZOLE [Interacting]
     Dosage: 200 MG, 2X/DAY
     Route: 048
  5. MEROPENEM TRIHYDRATE [Concomitant]
     Indication: FEBRILE NEUTROPENIA
     Dosage: UNK, INJECTION
  6. MAGNESIUM OXIDE [Concomitant]
     Dosage: 500 MG, 3X/DAY
     Route: 048
  7. VORICONAZOLE [Interacting]
     Indication: BRONCHOPULMONARY ASPERGILLOSIS
     Dosage: 200 MG, 2X/DAY
     Route: 048
  8. SODIUM ALGINATE [Concomitant]
     Dosage: 1 G, 3X/DAY
     Route: 048
  9. LANSOPRAZOLE [Suspect]
     Dosage: 30 MG, 1X/DAY
     Route: 048
  10. ACLARUBICIN HYDROCHLORIDE [Concomitant]
     Dosage: 14 MG/M2, 1 IN 12 HR
     Route: 042
  11. RAMOSETRON HYDROCHLORIDE [Concomitant]
     Dosage: 0.1 MG, 1X/DAY
     Route: 048
  12. PARACETAMOL [Concomitant]
     Dosage: 400 MG, 1X/DAY
     Route: 048
  13. CEFEPIME HYDROCHLORIDE [Concomitant]
     Dosage: 2 G, 1 IN 12 HR
     Route: 042
  14. ACLARUBICIN HYDROCHLORIDE [Concomitant]
     Indication: ACUTE MYELOID LEUKAEMIA
     Dosage: 14 MG/M2, 1X/DAY
     Route: 042
  15. CYTARABINE [Concomitant]
     Dosage: 10 MG/M2, 1 IN 12 HR
     Route: 058

REACTIONS (7)
  - ELECTROCARDIOGRAM QT PROLONGED [None]
  - EXTRASYSTOLES [None]
  - VENTRICULAR TACHYCARDIA [None]
  - TORSADE DE POINTES [None]
  - DRUG INTERACTION [None]
  - VENTRICULAR EXTRASYSTOLES [None]
  - HYPOMAGNESAEMIA [None]
